FAERS Safety Report 5400169-6 (Version None)
Quarter: 2007Q3

REPORT INFORMATION
  Report Type: 
  Country: None (occurrence: None)
  Receive Date: 20070730
  Receipt Date: 20070723
  Transmission Date: 20080115
  Serious: Yes (Other)
  Sender: FDA-Public Use
  Company Number: US-AMGEN-US235455

PATIENT
  Age: 61 Year
  Sex: Male

DRUGS (7)
  1. ARANESP [Suspect]
     Indication: RENAL FAILURE CHRONIC
     Route: 065
     Dates: start: 20061101, end: 20070101
  2. CELLCEPT [Concomitant]
     Route: 065
  3. NEORAL [Concomitant]
     Route: 065
  4. CETIRIZINE HCL [Concomitant]
     Route: 065
  5. MINOXIDIL [Concomitant]
     Route: 065
  6. LASIX [Concomitant]
     Route: 065
  7. PREDNISONE [Concomitant]
     Route: 065

REACTIONS (5)
  - BLOOD CREATININE INCREASED [None]
  - DERMATITIS EXFOLIATIVE [None]
  - HYPOTENSION [None]
  - PRURITUS [None]
  - URTICARIA [None]
